FAERS Safety Report 25413819 (Version 1)
Quarter: 2025Q2

REPORT INFORMATION
  Report Type: Spontaneous
  Country: US (occurrence: None)
  Receive Date: 20250607
  Receipt Date: 20250607
  Transmission Date: 20250717
  Serious: Yes (Other)
  Sender: FDA-CTU
  Company Number: None

PATIENT
  Age: 73 Year
  Sex: Male
  Weight: 83.25 kg

DRUGS (2)
  1. CEFDINIR [Suspect]
     Active Substance: CEFDINIR
     Indication: Cough
     Dosage: FREQUENCY : EVERY 12 HOURS;?
     Route: 048
     Dates: start: 20250602, end: 20250605
  2. A CANE TO WALK WITH [Concomitant]

REACTIONS (7)
  - Gait disturbance [None]
  - Dysarthria [None]
  - Abdominal distension [None]
  - Peripheral swelling [None]
  - Peripheral swelling [None]
  - Muscular weakness [None]
  - Arthralgia [None]

NARRATIVE: CASE EVENT DATE: 20250602
